FAERS Safety Report 9375208 (Version 2)
Quarter: 2013Q3

REPORT INFORMATION
  Report Type: Spontaneous
  Country: US (occurrence: US)
  Receive Date: 20130628
  Receipt Date: 20130809
  Transmission Date: 20140515
  Serious: No
  Sender: FDA-Public Use
  Company Number: US-009507513-1306USA013242

PATIENT
  Age: 38 Year
  Sex: Female
  Weight: 81.18 kg

DRUGS (2)
  1. NEXPLANON [Suspect]
     Dosage: UNK
     Route: 059
     Dates: start: 20130617, end: 20130617
  2. NEXPLANON [Suspect]
     Dosage: UNK
     Dates: start: 20130617

REACTIONS (3)
  - Device difficult to use [Unknown]
  - Product quality issue [Unknown]
  - No adverse event [Unknown]
